FAERS Safety Report 22015284 (Version 3)
Quarter: 2023Q1

REPORT INFORMATION
  Report Type: Spontaneous
  Country: US (occurrence: US)
  Receive Date: 20230221
  Receipt Date: 20230313
  Transmission Date: 20230417
  Serious: No
  Sender: FDA-Public Use
  Company Number: US-GSK-US2023026509

PATIENT
  Age: 29 Year
  Sex: Female
  Weight: 68.04 kg

DRUGS (1)
  1. BENLYSTA [Suspect]
     Active Substance: BELIMUMAB
     Indication: Product used for unknown indication
     Dosage: 200 MG/ML, FIRST, SECOND AND THIRD DOSE ADMINISTERED ON SUNDAY 12 FEB,19TH AND 26TH RESPECTIVELY
     Dates: start: 20230212, end: 20230226

REACTIONS (4)
  - Injection site bruising [Recovered/Resolved]
  - Injection site pain [Unknown]
  - Wrong technique in device usage process [Unknown]
  - Wrong technique in product usage process [Unknown]

NARRATIVE: CASE EVENT DATE: 20230214
